FAERS Safety Report 9744318 (Version 2)
Quarter: 2013Q4

REPORT INFORMATION
  Report Type: Spontaneous
  Country: US (occurrence: US)
  Receive Date: 20131210
  Receipt Date: 20131219
  Transmission Date: 20140711
  Serious: Yes (Other)
  Sender: FDA-Public Use
  Company Number: CHPA2013US017934

PATIENT
  Age: 69 Year
  Sex: Female

DRUGS (4)
  1. PREVACID 24HR 15MG [Suspect]
     Indication: OFF LABEL USE
  2. METRONIDAZOLE [Concomitant]
     Indication: GASTROINTESTINAL INFECTION
  3. PEPTO-BISMOL [Concomitant]
     Indication: GASTROINTESTINAL INFECTION
  4. PREVACID 24HR 15MG [Suspect]
     Indication: GASTROINTESTINAL INFECTION
     Route: 048

REACTIONS (2)
  - Expired drug administered [Unknown]
  - Ligament injury [Recovering/Resolving]
